FAERS Safety Report 7658497 (Version 3)
Quarter: 2013Q2

REPORT INFORMATION
  Report Type: Report from Study
  Country: US (occurrence: US)
  Receive Date: 20101105
  Receipt Date: 20130412
  Transmission Date: 20140414
  Serious: Yes (Hospitalization)
  Sender: FDA-Public Use
  Company Number: PHHO2010US16591

PATIENT
  Age: 50 Year
  Sex: Male
  Weight: 102 kg

DRUGS (7)
  1. CERTICAN [Suspect]
     Indication: RENAL TRANSPLANT
     Dosage: 0.75 MG, BID
     Route: 048
     Dates: start: 20101015, end: 20101020
  2. CERTICAN [Suspect]
     Dosage: 1.5 MG, BID
     Route: 048
     Dates: start: 20101021
  3. TACROLIMUS [Suspect]
     Indication: RENAL TRANSPLANT
     Dosage: 1 MG, BID
     Route: 048
     Dates: start: 20101018, end: 20101022
  4. TACROLIMUS [Suspect]
     Dosage: 2 MG, BID
     Route: 048
     Dates: start: 20101023, end: 20101023
  5. TACROLIMUS [Suspect]
     Dosage: 5 MG, QD (2 MG AM, 3 MG PM)
     Route: 048
     Dates: start: 20101024, end: 20101024
  6. TACROLIMUS [Suspect]
     Dosage: 3 MG, BID
     Route: 048
     Dates: start: 20101025
  7. PREDNISOLONE [Suspect]
     Indication: RENAL TRANSPLANT

REACTIONS (2)
  - Fluid overload [Recovered/Resolved]
  - Oedema [Recovered/Resolved]
